FAERS Safety Report 7051614-4 (Version None)
Quarter: 2010Q4

REPORT INFORMATION
  Report Type: 
  Country: None (occurrence: None)
  Receive Date: 20101018
  Receipt Date: 20101018
  Transmission Date: 20110411
  Serious: Yes (Other)
  Sender: FDA-Public Use
  Company Number: None

PATIENT
  Age: 29 Year
  Sex: Male
  Weight: 79.3795 kg

DRUGS (2)
  1. OXYCONTIN [Suspect]
     Indication: INTERVERTEBRAL DISC PROTRUSION
     Dosage: 1 TABLET -20MG- EVERY 12 HOURS PO
     Route: 048
     Dates: start: 20070701, end: 20101014
  2. OXYCONTIN [Suspect]
     Indication: NERVE COMPRESSION
     Dosage: 1 TABLET -20MG- EVERY 12 HOURS PO
     Route: 048
     Dates: start: 20070701, end: 20101014

REACTIONS (3)
  - ABDOMINAL PAIN UPPER [None]
  - INADEQUATE ANALGESIA [None]
  - RASH GENERALISED [None]
